FAERS Safety Report 11003972 (Version 1)
Quarter: 2015Q2

REPORT INFORMATION
  Report Type: Spontaneous
  Country: US (occurrence: None)
  Receive Date: 20150408
  Receipt Date: 20150408
  Transmission Date: 20150821
  Serious: No
  Sender: FDA-Public Use
  Company Number: None

PATIENT
  Age: 34 Year
  Sex: Female
  Weight: 83.92 kg

DRUGS (4)
  1. FLUOXETINE [Concomitant]
     Active Substance: FLUOXETINE\FLUOXETINE HYDROCHLORIDE
  2. IBUPROFEN. [Concomitant]
     Active Substance: IBUPROFEN
  3. CYCLOBENZAPRINE [Suspect]
     Active Substance: CYCLOBENZAPRINE
     Indication: MUSCLE SPASMS
     Dosage: TAKEN BY MOUTH
     Dates: start: 20150327, end: 20150402
  4. MIRENA [Concomitant]
     Active Substance: LEVONORGESTREL

REACTIONS (6)
  - Breast disorder [None]
  - Breast enlargement [None]
  - Galactorrhoea [None]
  - Breast milk discolouration [None]
  - Dry mouth [None]
  - Vulvovaginal dryness [None]

NARRATIVE: CASE EVENT DATE: 20150327
